FAERS Safety Report 20832890 (Version 3)
Quarter: 2022Q2

REPORT INFORMATION
  Report Type: Spontaneous
  Country: US (occurrence: US)
  Receive Date: 20220516
  Receipt Date: 20220616
  Transmission Date: 20220721
  Serious: No
  Sender: FDA-Public Use
  Company Number: US-GLAXOSMITHKLINE-US2022076877

PATIENT
  Sex: Female

DRUGS (2)
  1. ZEJULA [Suspect]
     Active Substance: NIRAPARIB
     Indication: Ovarian cancer
     Dosage: 200 MG, QD
     Route: 048
     Dates: start: 20220428
  2. ZEJULA [Suspect]
     Active Substance: NIRAPARIB
     Dosage: 200 MG, QD
     Dates: start: 20220428

REACTIONS (10)
  - Carbohydrate antigen 125 increased [Not Recovered/Not Resolved]
  - Blood pressure fluctuation [Unknown]
  - Heart rate increased [Unknown]
  - Constipation [Unknown]
  - Photosensitivity reaction [Unknown]
  - Nausea [Unknown]
  - Nervousness [Unknown]
  - Hypertension [Unknown]
  - Tinnitus [Unknown]
  - Anxiety [Unknown]
